FAERS Safety Report 9806041 (Version 2)
Quarter: 2014Q1

REPORT INFORMATION
  Report Type: Spontaneous
  Country: US (occurrence: US)
  Receive Date: 20140109
  Receipt Date: 20140317
  Transmission Date: 20141002
  Serious: No
  Sender: FDA-Public Use
  Company Number: US-009507513-1401USA002646

PATIENT
  Age: 87 Year
  Sex: Female
  Weight: 44.44 kg

DRUGS (5)
  1. OXYTROL FOR WOMEN [Suspect]
     Indication: URINARY INCONTINENCE
     Dosage: 1 DF, Q5D
     Route: 062
     Dates: start: 20131201, end: 20131210
  2. LEVOTHYROXINE SODIUM [Concomitant]
     Indication: THYROID DISORDER
     Dosage: UNK, UNKNOWN
  3. CALCIUM (UNSPECIFIED) [Concomitant]
     Indication: PRODUCT USED FOR UNKNOWN INDICATION
     Dosage: UNK, UNKNOWN
  4. ASPIRIN [Concomitant]
     Indication: PRODUCT USED FOR UNKNOWN INDICATION
     Dosage: UNK, UNKNOWN
  5. CRANBERRY [Concomitant]
     Indication: PRODUCT USED FOR UNKNOWN INDICATION
     Dosage: UNK, UNKNOWN

REACTIONS (2)
  - Hallucination, visual [Recovered/Resolved]
  - Headache [Recovered/Resolved]
